FAERS Safety Report 8236056-8 (Version None)
Quarter: 2012Q1

REPORT INFORMATION
  Report Type: 
  Country: None (occurrence: None)
  Receive Date: 20120326
  Receipt Date: 20120314
  Transmission Date: 20120608
  Serious: Yes (Death, Other)
  Sender: FDA-Public Use
  Company Number: GR-BRISTOL-MYERS SQUIBB COMPANY-16453847

PATIENT
  Age: 76 Year
  Sex: Male

DRUGS (4)
  1. GRANULOKINE [Suspect]
     Indication: PROPHYLAXIS
  2. CARBOPLATIN [Suspect]
     Indication: GASTRIC CANCER
  3. DOCETAXEL [Suspect]
     Indication: GASTRIC CANCER
  4. CAPECITABINE [Suspect]
     Indication: GASTRIC CANCER

REACTIONS (5)
  - LEPROSY [None]
  - NEUTROPENIA [None]
  - THROMBOTIC MICROANGIOPATHY [None]
  - GANGRENE [None]
  - NEOPLASM MALIGNANT [None]
